FAERS Safety Report 7454040-9 (Version None)
Quarter: 2011Q2

REPORT INFORMATION
  Report Type: 
  Country: None (occurrence: None)
  Receive Date: 20110502
  Receipt Date: 20110418
  Transmission Date: 20111010
  Serious: Yes (Hospitalization)
  Sender: FDA-Public Use
  Company Number: PK-WATSON-2011-05869

PATIENT
  Age: 11 Year
  Sex: Male

DRUGS (5)
  1. ETOPOSIDE [Suspect]
     Indication: ACUTE MYELOID LEUKAEMIA
     Dosage: UNK
     Route: 065
  2. HYDROCORTISONE ACETATE [Suspect]
     Indication: ACUTE MYELOID LEUKAEMIA
     Dosage: UNK
     Route: 037
  3. DAUNORUBICIN HCL [Suspect]
     Indication: ACUTE MYELOID LEUKAEMIA
  4. METHOTREXATE [Suspect]
     Indication: ACUTE MYELOID LEUKAEMIA
  5. CYTARABINE [Suspect]
     Indication: ACUTE MYELOID LEUKAEMIA

REACTIONS (3)
  - INFECTION [None]
  - ASPERGILLOSIS [None]
  - NEUTROPENIA [None]
